FAERS Safety Report 8607006-7 (Version None)
Quarter: 2012Q3

REPORT INFORMATION
  Report Type: 
  Country: None (occurrence: None)
  Receive Date: 20120820
  Receipt Date: 20120815
  Transmission Date: 20120928
  Serious: Yes (Hospitalization, Other)
  Sender: FDA-Public Use
  Company Number: US-AMGEN-USASP2012039056

PATIENT
  Age: 30 Year
  Sex: Female

DRUGS (1)
  1. EPOGEN [Suspect]
     Indication: DIALYSIS
     Dosage: 4400 IU, 3 TIMES/WK

REACTIONS (3)
  - MENSTRUATION IRREGULAR [None]
  - DIABETES MELLITUS INADEQUATE CONTROL [None]
  - ABORTION INDUCED [None]
